FAERS Safety Report 17350026 (Version 1)
Quarter: 2020Q1

REPORT INFORMATION
  Report Type: Spontaneous
  Country: US (occurrence: US)
  Receive Date: 20200130
  Receipt Date: 20200130
  Transmission Date: 20200409
  Serious: No
  Sender: FDA-Public Use
  Company Number: US-IPSEN BIOPHARMACEUTICALS, INC.-2020-01865

PATIENT
  Age: 67 Year
  Sex: Female

DRUGS (1)
  1. DYSPORT [Suspect]
     Active Substance: ABOBOTULINUMTOXINA
     Indication: BLEPHAROSPASM
     Dosage: 100 IU
     Route: 030
     Dates: start: 20181214

REACTIONS (4)
  - Visual impairment [Unknown]
  - Incorrect route of product administration [Unknown]
  - Contusion [Unknown]
  - Eyelid ptosis [Unknown]

NARRATIVE: CASE EVENT DATE: 20181214
